FAERS Safety Report 11050431 (Version 1)
Quarter: 2015Q2

REPORT INFORMATION
  Report Type: Spontaneous
  Country: ES (occurrence: ES)
  Receive Date: 20150421
  Receipt Date: 20150421
  Transmission Date: 20150821
  Serious: Yes (Hospitalization, Other)
  Sender: FDA-Public Use
  Company Number: ES-ROCHE-1564333

PATIENT
  Age: 42 Year
  Sex: Male

DRUGS (1)
  1. XOLAIR [Suspect]
     Active Substance: OMALIZUMAB
     Indication: CHRONIC SPONTANEOUS URTICARIA
     Route: 058
     Dates: start: 20140727, end: 20150407

REACTIONS (4)
  - Coronary artery disease [Unknown]
  - Ischaemic cardiomyopathy [Unknown]
  - Acute coronary syndrome [Recovered/Resolved]
  - Angina unstable [Unknown]
